FAERS Safety Report 16458371 (Version 4)
Quarter: 2019Q3

REPORT INFORMATION
  Report Type: Report from Study
  Country: None (occurrence: US)
  Receive Date: 20190620
  Receipt Date: 20190828
  Transmission Date: 20191004
  Serious: Yes (Other)
  Sender: FDA-Public Use
  Company Number: US-ABBVIE-19K-163-2823754-00

PATIENT
  Sex: Male

DRUGS (1)
  1. HUMIRA [Suspect]
     Active Substance: ADALIMUMAB
     Indication: CROHN^S DISEASE
     Route: 058

REACTIONS (4)
  - Erectile dysfunction [Not Recovered/Not Resolved]
  - Frequent bowel movements [Recovering/Resolving]
  - Drug ineffective [Recovering/Resolving]
  - Gastrointestinal obstruction [Recovering/Resolving]
